FAERS Safety Report 8332539-0 (Version None)
Quarter: 2012Q2

REPORT INFORMATION
  Report Type: 
  Country: None (occurrence: None)
  Receive Date: 20120503
  Receipt Date: 20120501
  Transmission Date: 20120825
  Serious: No
  Sender: FDA-Public Use
  Company Number: US-PFIZER INC-2012088767

PATIENT
  Sex: Female

DRUGS (2)
  1. EFFEXOR XR [Suspect]
     Indication: DEPRESSION
     Dosage: 75 MG, 1X/DAY
     Route: 048
  2. CIPROFLOXACIN [Suspect]
     Indication: BRONCHITIS
     Dosage: 500 MG, 1X/DAY
     Route: 048
     Dates: start: 20120312, end: 20120314

REACTIONS (2)
  - BRONCHITIS [None]
  - DEPRESSION [None]
